FAERS Safety Report 8362854-6 (Version None)
Quarter: 2012Q2

REPORT INFORMATION
  Report Type: 
  Country: None (occurrence: None)
  Receive Date: 20120516
  Receipt Date: 20120514
  Transmission Date: 20120825
  Serious: Yes (Death, Other)
  Sender: FDA-Public Use
  Company Number: PHFR2012GB001026

PATIENT
  Sex: Female

DRUGS (6)
  1. DEPAKOTE [Concomitant]
     Dosage: 2000 MG, DAILY
     Route: 048
     Dates: start: 20030101
  2. CLOZARIL [Suspect]
     Indication: SCHIZOPHRENIA
     Dosage: UNK UKN, UNK
     Route: 048
     Dates: start: 20020627
  3. ZOPICLONE [Concomitant]
     Dosage: 7.5 MG, DAILY
     Route: 048
     Dates: start: 20040101
  4. CARBAMAZEPINE [Concomitant]
     Dosage: 400 MG, DAILY
     Route: 048
     Dates: start: 20110101
  5. CLOZARIL [Suspect]
     Dosage: 650 MG, DAILY
     Route: 048
     Dates: start: 20030101
  6. CLOMIPRAMINE HCL [Concomitant]
     Dosage: 200 MG, DAILY
     Dates: start: 20040101

REACTIONS (4)
  - DEATH [None]
  - MENTAL DISORDER [None]
  - EPILEPSY [None]
  - ANTIPSYCHOTIC DRUG LEVEL ABOVE THERAPEUTIC [None]
